FAERS Safety Report 8131867-1 (Version None)
Quarter: 2012Q1

REPORT INFORMATION
  Report Type: 
  Country: None (occurrence: None)
  Receive Date: 20120208
  Receipt Date: 20120125
  Transmission Date: 20120608
  Serious: Yes (Hospitalization, Other)
  Sender: FDA-Public Use
  Company Number: DSU-2012-00636

PATIENT
  Age: 42 Year
  Sex: Male
  Weight: 86.1834 kg

DRUGS (1)
  1. BENICAR HCT [Suspect]
     Indication: HYPERTENSION
     Dosage: 20/12.5MG (QD), PER ORAL
     Route: 048

REACTIONS (7)
  - FATIGUE [None]
  - TREATMENT FAILURE [None]
  - RENAL DISORDER [None]
  - RENAL FAILURE [None]
  - ASTHENIA [None]
  - NEPHROLITHIASIS [None]
  - OBSTRUCTION [None]
